FAERS Safety Report 4690626-2 (Version None)
Quarter: 2005Q2

REPORT INFORMATION
  Report Type: 
  Country: None (occurrence: None)
  Receive Date: 20050615
  Receipt Date: 20040517
  Transmission Date: 20051028
  Serious: Yes (Death)
  Sender: FDA-Public Use
  Company Number: US-GLAXOSMITHKLINE-A0511243A

PATIENT
  Sex: Male

DRUGS (1)
  1. WELLBUTRIN SR [Suspect]
     Indication: MAJOR DEPRESSION
     Dosage: 150MG SEE DOSAGE TEXT
     Dates: start: 19990317

REACTIONS (13)
  - COMPLETED SUICIDE [None]
  - DECREASED APPETITE [None]
  - DEPRESSED MOOD [None]
  - DISTURBANCE IN ATTENTION [None]
  - FEELINGS OF WORTHLESSNESS [None]
  - GUN SHOT WOUND [None]
  - HEAD INJURY [None]
  - MAJOR DEPRESSION [None]
  - SLEEP DISORDER [None]
  - SOCIAL AVOIDANT BEHAVIOUR [None]
  - SUICIDAL IDEATION [None]
  - TREATMENT NONCOMPLIANCE [None]
  - TREMOR [None]
